FAERS Safety Report 7500043-5 (Version None)
Quarter: 2011Q2

REPORT INFORMATION
  Report Type: 
  Country: None (occurrence: None)
  Receive Date: 20110524
  Receipt Date: 20110328
  Transmission Date: 20111010
  Serious: No
  Sender: FDA-Public Use
  Company Number: US-NOVEN-11US002139

PATIENT
  Age: 11 Year
  Sex: Male

DRUGS (2)
  1. DAYTRANA [Suspect]
     Indication: DISTURBANCE IN ATTENTION
     Dosage: 15 MG, UNKNOWN
     Route: 062
     Dates: start: 20110101
  2. TOPAMAX [Concomitant]
     Indication: CONVULSION
     Dosage: UNK
     Route: 048

REACTIONS (3)
  - CONVULSION [None]
  - DRUG ADMINISTRATION ERROR [None]
  - PRODUCT QUALITY ISSUE [None]
